FAERS Safety Report 13042170 (Version 1)
Quarter: 2016Q4

REPORT INFORMATION
  Report Type: Spontaneous
  Country: US (occurrence: US)
  Receive Date: 20161219
  Receipt Date: 20161219
  Transmission Date: 20170207
  Serious: No
  Sender: FDA-Public Use
  Company Number: US-PFIZER INC-2016584459

PATIENT
  Sex: Female

DRUGS (1)
  1. DEPO-MEDROL [Suspect]
     Active Substance: METHYLPREDNISOLONE ACETATE
     Dosage: 80MG SHOT IN RIGHT KNEE
     Route: 014
     Dates: start: 20161213, end: 20161213

REACTIONS (6)
  - Asthenia [Unknown]
  - Dizziness [Unknown]
  - Erythema [Unknown]
  - Insomnia [Unknown]
  - Ear pain [Unknown]
  - Rash [Unknown]
